FAERS Safety Report 4362259-9 (Version None)
Quarter: 2004Q2

REPORT INFORMATION
  Report Type: 
  Country: None (occurrence: None)
  Receive Date: 20040517
  Receipt Date: 20040503
  Transmission Date: 20050107
  Serious: Yes (Other)
  Sender: FDA-Public Use
  Company Number: US-JNJFOC-20031103625

PATIENT
  Age: 33 Year
  Sex: Female
  Weight: 58.9676 kg

DRUGS (1)
  1. ORTHO EVRA [Suspect]
     Indication: CONTRACEPTION
     Dosage: 1 DOSE (S), TRANSDERMAL
     Route: 062
     Dates: start: 20031114, end: 20031115

REACTIONS (12)
  - CHEST PAIN [None]
  - COLD SWEAT [None]
  - DRUG WITHDRAWAL SYNDROME [None]
  - DYSPHASIA [None]
  - FEELING JITTERY [None]
  - FORMICATION [None]
  - HEART RATE DECREASED [None]
  - HEART RATE INCREASED [None]
  - HYPERSENSITIVITY [None]
  - HYPERTENSION [None]
  - MENTAL IMPAIRMENT [None]
  - MYDRIASIS [None]
